FAERS Safety Report 17849546 (Version 3)
Quarter: 2020Q2

REPORT INFORMATION
  Report Type: Spontaneous
  Country: NO (occurrence: NO)
  Receive Date: 20200602
  Receipt Date: 20200629
  Transmission Date: 20200714
  Serious: Yes (Hospitalization, Other)
  Sender: FDA-Public Use
  Company Number: NVSC2020NO151115

PATIENT
  Age: 65 Year
  Sex: Female

DRUGS (3)
  1. ANAFRANIL [Suspect]
     Active Substance: CLOMIPRAMINE HYDROCHLORIDE
     Dosage: 250 MG
     Route: 065
     Dates: start: 202002
  2. ANAFRANIL [Suspect]
     Active Substance: CLOMIPRAMINE HYDROCHLORIDE
     Dosage: 225 MG
     Route: 065
     Dates: start: 20200614
  3. ANAFRANIL [Suspect]
     Active Substance: CLOMIPRAMINE HYDROCHLORIDE
     Indication: DEPRESSION
     Dosage: 150 MG
     Route: 065

REACTIONS (12)
  - Middle insomnia [Unknown]
  - Fatigue [Unknown]
  - Psychotic disorder [Recovered/Resolved]
  - Depression [Recovered/Resolved]
  - Confusional state [Unknown]
  - Hypomania [Unknown]
  - Mental impairment [Unknown]
  - Hunger [Unknown]
  - Memory impairment [Unknown]
  - Somnolence [Unknown]
  - Listless [Unknown]
  - Agitation [Unknown]

NARRATIVE: CASE EVENT DATE: 201910
